FAERS Safety Report 18038381 (Version 1)
Quarter: 2020Q3

REPORT INFORMATION
  Report Type: Spontaneous
  Country: FR (occurrence: FR)
  Receive Date: 20200717
  Receipt Date: 20200717
  Transmission Date: 20201103
  Serious: Yes (Other)
  Sender: FDA-Public Use
  Company Number: NVSC2020FR172406

PATIENT
  Age: 17 Year
  Sex: Female

DRUGS (3)
  1. VORICONAZOLE. [Suspect]
     Active Substance: VORICONAZOLE
     Indication: ASPERGILLUS INFECTION
     Dosage: 200 MG, BID
     Route: 065
  2. VORICONAZOLE. [Suspect]
     Active Substance: VORICONAZOLE
     Indication: PULMONARY MYCOSIS
  3. AMPHOTERICIN B. [Suspect]
     Active Substance: AMPHOTERICIN B
     Indication: MUCORMYCOSIS
     Dosage: UNK
     Route: 065

REACTIONS (2)
  - Nephropathy toxic [Unknown]
  - Drug resistance [Unknown]
